FAERS Safety Report 9417349 (Version 3)
Quarter: 2013Q3

REPORT INFORMATION
  Report Type: Report from Study
  Country: US (occurrence: US)
  Receive Date: 20130724
  Receipt Date: 20130816
  Transmission Date: 20140515
  Serious: Yes (Death, Hospitalization, Disabling)
  Sender: FDA-Public Use
  Company Number: US-ACTELION-A-NJ2013-77846

PATIENT
  Age: 72 Year
  Sex: Male

DRUGS (2)
  1. TRACLEER [Suspect]
     Indication: PULMONARY ARTERIAL HYPERTENSION
     Dosage: UNK
     Route: 048
     Dates: start: 20130228, end: 20130709
  2. TRACLEER [Suspect]
     Dosage: UNK
     Route: 048

REACTIONS (3)
  - Chronic respiratory failure [Fatal]
  - Disease progression [Fatal]
  - Chronic obstructive pulmonary disease [Unknown]
